FAERS Safety Report 19799523 (Version 1)
Quarter: 2021Q3

REPORT INFORMATION
  Report Type: Spontaneous
  Country: US (occurrence: US)
  Receive Date: 20210907
  Receipt Date: 20210907
  Transmission Date: 20211014
  Serious: No
  Sender: FDA-Public Use
  Company Number: US-ASTRAZENECA-2021A687545

PATIENT
  Sex: Female
  Weight: 78 kg

DRUGS (4)
  1. CHOLESTEROL [Concomitant]
     Active Substance: CHOLESTEROL
     Route: 065
  2. BYETTA [Suspect]
     Active Substance: EXENATIDE
     Route: 065
  3. HEART BURN [Concomitant]
     Route: 065
  4. DIABETES [Concomitant]
     Route: 065

REACTIONS (4)
  - Device malfunction [Unknown]
  - COVID-19 [Unknown]
  - Visual impairment [Unknown]
  - Incorrect dose administered by device [Unknown]
